FAERS Safety Report 15476116 (Version 2)
Quarter: 2018Q4

REPORT INFORMATION
  Report Type: Spontaneous
  Country: US (occurrence: US)
  Receive Date: 20181009
  Receipt Date: 20181012
  Transmission Date: 20190205
  Serious: Yes (Other)
  Sender: FDA-Public Use
  Company Number: US-B.I. PHARMACEUTICALS,INC./RIDGEFIELD-2018-BI-049149

PATIENT
  Age: 58 Year
  Sex: Female

DRUGS (1)
  1. COMBIVENT [Suspect]
     Active Substance: ALBUTEROL SULFATE\IPRATROPIUM BROMIDE
     Indication: CHRONIC OBSTRUCTIVE PULMONARY DISEASE
     Dosage: STRENGTH: 20 MCG / 100 MCG; FORMULATION: INHALATION SPRAY; ACTION(S) TAKEN: DOSE NOT CHANGED
     Route: 055

REACTIONS (8)
  - Lung cancer metastatic [Not Recovered/Not Resolved]
  - Cognitive disorder [Not Recovered/Not Resolved]
  - Pneumonia [Unknown]
  - Pulmonary mass [Not Recovered/Not Resolved]
  - Deafness [Not Recovered/Not Resolved]
  - Pneumonia [Not Recovered/Not Resolved]
  - Small cell lung cancer metastatic [Not Recovered/Not Resolved]
  - Blindness [Not Recovered/Not Resolved]

NARRATIVE: CASE EVENT DATE: 201608
